FAERS Safety Report 9624232 (Version 1)
Quarter: 2013Q4

REPORT INFORMATION
  Report Type: Spontaneous
  Country: US (occurrence: US)
  Receive Date: 20131015
  Receipt Date: 20131015
  Transmission Date: 20140711
  Serious: Yes (Hospitalization)
  Sender: FDA-Public Use
  Company Number: US-BRISTOL-MYERS SQUIBB COMPANY-19492321

PATIENT
  Age: 49 Year
  Sex: Female

DRUGS (11)
  1. YERVOY [Suspect]
     Indication: METASTATIC MALIGNANT MELANOMA
     Dosage: 2ND INF: 17SEP2013
  2. ATIVAN [Concomitant]
  3. IMODIUM [Concomitant]
     Dosage: PRODUCT FORMULATION:IMODIUM LACTATE LOTION
  4. BABY ASPIRIN [Concomitant]
  5. CALCIUM [Concomitant]
  6. CYCLOBENZAPRINE [Concomitant]
  7. BENADRYL [Concomitant]
  8. MOTRIN [Concomitant]
  9. FRAGMIN [Concomitant]
     Dosage: 1DF=12500 UNIT
  10. HYDROCODONE + ACETAMINOPHEN [Concomitant]
     Dosage: 1DF: 5-325 UNITS NOS
  11. PREDNISONE [Concomitant]

REACTIONS (5)
  - Hypoaesthesia [Unknown]
  - Headache [Unknown]
  - Osteoarthritis [Unknown]
  - Musculoskeletal pain [Unknown]
  - Pruritus [Unknown]
